FAERS Safety Report 19099899 (Version 1)
Quarter: 2021Q2

REPORT INFORMATION
  Report Type: Spontaneous
  Country: US (occurrence: US)
  Receive Date: 20210407
  Receipt Date: 20210407
  Transmission Date: 20210717
  Serious: Yes (Other)
  Sender: FDA-Public Use
  Company Number: US-DRREDDYS-USA/USA/21/0133784

PATIENT
  Age: 57 Year
  Sex: Female

DRUGS (5)
  1. CYCLOPHOSPHAMIDE. [Suspect]
     Active Substance: CYCLOPHOSPHAMIDE
     Indication: PRECURSOR T-LYMPHOBLASTIC LEUKAEMIA ACUTE
  2. VINCRISTINE [Suspect]
     Active Substance: VINCRISTINE
     Indication: PRECURSOR T-LYMPHOBLASTIC LEUKAEMIA ACUTE
  3. ADRIAMYCIN [Suspect]
     Active Substance: DOXORUBICIN HYDROCHLORIDE
     Indication: PRECURSOR T-LYMPHOBLASTIC LEUKAEMIA ACUTE
  4. DEXAMETHASONE SODIUM PHOSPHATE INJECTION, 4 MG/ML [Suspect]
     Active Substance: DEXAMETHASONE SODIUM PHOSPHATE
     Indication: PRECURSOR T-LYMPHOBLASTIC LEUKAEMIA ACUTE
  5. VENETOCLAX. [Suspect]
     Active Substance: VENETOCLAX
     Indication: PRECURSOR T-LYMPHOBLASTIC LEUKAEMIA ACUTE

REACTIONS (2)
  - Escherichia sepsis [Unknown]
  - Neutropenia [Unknown]
